FAERS Safety Report 5931470-5 (Version None)
Quarter: 2008Q4

REPORT INFORMATION
  Report Type: 
  Country: None (occurrence: None)
  Receive Date: 20081027
  Receipt Date: 20081016
  Transmission Date: 20090506
  Serious: Yes (Other)
  Sender: FDA-Public Use
  Company Number: BR-JNJFOC-20081004648

PATIENT
  Sex: Male

DRUGS (1)
  1. ACETAMINOPHEN W/ CODEINE [Suspect]
     Indication: KNEE OPERATION
     Route: 048

REACTIONS (4)
  - ABDOMINAL PAIN UPPER [None]
  - DIARRHOEA [None]
  - HYPERTENSION [None]
  - INTRAOCULAR PRESSURE INCREASED [None]
